FAERS Safety Report 8502853-4 (Version None)
Quarter: 2012Q3

REPORT INFORMATION
  Report Type: 
  Country: None (occurrence: None)
  Receive Date: 20120702
  Receipt Date: 20120220
  Transmission Date: 20120928
  Serious: Yes (Hospitalization)
  Sender: FDA-Public Use
  Company Number: B0783557A

PATIENT
  Sex: Male
  Weight: 166.6515 kg

DRUGS (4)
  1. CEFTAZIDIME [Suspect]
     Indication: PYREXIA
     Dosage: IV
     Route: 042
     Dates: start: 20111202, end: 20111220
  2. TEICOPLANIN (NO PREF. NAME) [Suspect]
     Indication: PYREXIA
     Dosage: IV
     Route: 042
     Dates: start: 20111202, end: 20111218
  3. AMPHOTERICIN B [Suspect]
     Indication: PRODUCT USED FOR UNKNOWN INDICATION
     Dosage: UNK
     Dates: start: 20111208, end: 20111208
  4. CYCLOSPORINE [Suspect]
     Indication: APLASTIC ANAEMIA
     Dosage: PO
     Route: 048
     Dates: start: 20111111

REACTIONS (1)
  - ANAPHYLACTIC REACTION [None]
